FAERS Safety Report 10551535 (Version 2)
Quarter: 2014Q4

REPORT INFORMATION
  Report Type: Spontaneous
  Country: US (occurrence: None)
  Receive Date: 20141027
  Receipt Date: 20141110
  Transmission Date: 20150529
  Serious: Yes (Other)
  Sender: FDA-Public Use
  Company Number: 2014-US-013580

PATIENT
  Sex: Female
  Weight: 77.1 kg

DRUGS (15)
  1. ATENOLOL (ATENOLOL) [Concomitant]
     Active Substance: ATENOLOL
  2. SYNTHROID [Concomitant]
     Active Substance: LEVOTHYROXINE SODIUM
  3. LIOTHYRONINE SODIUM (LIOTHYRONINE SODIUM) [Concomitant]
  4. ROPINIROLE HYDROCHLORIDE (ROPINIROLE HYDROCHLORIDE) [Concomitant]
  5. MELATONIN (MELATONIN) [Concomitant]
     Active Substance: MELATONIN
  6. SKELAXIN (METAXALONE) [Concomitant]
  7. ALBUTEROL (SALBUTAMOL SULFATE) [Concomitant]
  8. AMBIEN [Concomitant]
     Active Substance: ZOLPIDEM TARTRATE
  9. XYREM [Suspect]
     Active Substance: SODIUM OXYBATE
     Indication: INSOMNIA
     Route: 048
     Dates: start: 201312, end: 2013
  10. HYDROCODONE (HYDROCODONE BITARTRATE) [Concomitant]
     Active Substance: HYDROCODONE BITARTRATE
  11. NABUMETONE. [Concomitant]
     Active Substance: NABUMETONE
  12. LYRICA [Concomitant]
     Active Substance: PREGABALIN
  13. DOXYLAMINE SUCCINATE (DOXYLAMINE SUCCINATE) [Concomitant]
  14. VITAMIN D [Concomitant]
     Active Substance: CHOLECALCIFEROL
  15. DIAZEPAM. [Suspect]
     Active Substance: DIAZEPAM
     Indication: MUSCLE SPASMS
     Route: 048
     Dates: end: 2014

REACTIONS (8)
  - Feeling abnormal [None]
  - Weight increased [None]
  - Muscle twitching [None]
  - Dehydration [None]
  - Muscle spasms [None]
  - Insomnia [None]
  - Drug withdrawal syndrome [None]
  - Off label use [None]

NARRATIVE: CASE EVENT DATE: 201312
